FAERS Safety Report 9293289 (Version 2)
Quarter: 2013Q3

REPORT INFORMATION
  Report Type: Spontaneous
  Country: US (occurrence: US)
  Receive Date: 20130516
  Receipt Date: 20130725
  Transmission Date: 20140515
  Serious: Yes (Other)
  Sender: FDA-Public Use
  Company Number: US-ASTRAZENECA-2013SE32333

PATIENT
  Age: 66 Year
  Sex: Female
  Weight: 93.4 kg

DRUGS (17)
  1. ATENOLOL [Suspect]
     Indication: HYPERTENSION
     Route: 048
     Dates: start: 2006
  2. ARIMIDEX [Suspect]
     Indication: BREAST CANCER FEMALE
     Route: 048
     Dates: start: 20100501
  3. ARIMIDEX [Suspect]
     Indication: BREAST CANCER FEMALE
     Dosage: GENERIC ANASTROZOLE
     Route: 065
  4. OMEPRAZOLE [Suspect]
     Indication: GASTRIC DISORDER
     Route: 048
     Dates: start: 201207
  5. LANTUS [Concomitant]
     Indication: DIABETES MELLITUS
     Dosage: 50 UNITS DAILY
     Route: 058
  6. NOVALOG [Concomitant]
     Indication: DIABETES MELLITUS
     Dosage: SLIDING SCALE QID
     Route: 058
  7. PLAVIX [Concomitant]
     Indication: CARDIAC DISORDER
     Route: 048
     Dates: start: 2006
  8. ASPIRIN [Concomitant]
     Indication: CARDIAC DISORDER
     Route: 048
     Dates: start: 2006
  9. ISOSORBIDE MONONITRATE [Concomitant]
     Indication: ANGINA PECTORIS
     Route: 048
     Dates: start: 2006
  10. LEVOXYL [Concomitant]
     Indication: BASEDOW^S DISEASE
     Dosage: .112 MCG DAILY
     Route: 048
  11. CLOBEX CREAM [Concomitant]
     Indication: RASH
     Dosage: UNKNOWN BID
     Route: 061
     Dates: start: 20130502
  12. METFORMIN [Concomitant]
     Indication: DIABETES MELLITUS
     Route: 048
     Dates: start: 1997
  13. LOVASTATIN [Concomitant]
     Indication: BLOOD CHOLESTEROL ABNORMAL
     Route: 048
  14. BENICAR [Concomitant]
     Indication: PROPHYLAXIS
     Route: 048
  15. ALPRAZOLAM [Concomitant]
     Indication: NERVOUS SYSTEM DISORDER
     Route: 048
  16. RANITIDINE [Concomitant]
     Indication: GASTRIC DISORDER
     Route: 048
  17. TRIAMCINOLONE ACETONIDE CREAM [Concomitant]
     Indication: RASH
     Dosage: .1 PERCENT
     Route: 061
     Dates: start: 20130326

REACTIONS (9)
  - Breast cancer female [Unknown]
  - Barrett^s oesophagus [Unknown]
  - Lacrimation increased [Unknown]
  - Erythema annulare [Recovering/Resolving]
  - Vitamin D decreased [Unknown]
  - Weight increased [Unknown]
  - Seborrhoeic dermatitis [Unknown]
  - Adverse event [Unknown]
  - Dry eye [Unknown]
